FAERS Safety Report 21742256 (Version 1)
Quarter: 2022Q4

REPORT INFORMATION
  Report Type: Report from Study
  Country: US (occurrence: US)
  Receive Date: 20221216
  Receipt Date: 20221216
  Transmission Date: 20230113
  Serious: Yes (Other)
  Sender: FDA-Public Use
  Company Number: US-GW PHARMA-2022-US-037557

PATIENT
  Sex: Female

DRUGS (3)
  1. EPIDIOLEX [Suspect]
     Active Substance: CANNABIDIOL
     Indication: Product used for unknown indication
     Dosage: 2 MILLILITER, BID
     Route: 048
  2. BRIVIACT [Concomitant]
     Active Substance: BRIVARACETAM
     Indication: Product used for unknown indication
     Dosage: UNK
  3. LAMOTRIGINE [Concomitant]
     Active Substance: LAMOTRIGINE
     Indication: Product used for unknown indication

REACTIONS (1)
  - Influenza [Unknown]
